FAERS Safety Report 9617155 (Version 1)
Quarter: 2013Q4

REPORT INFORMATION
  Report Type: Spontaneous
  Country: US (occurrence: US)
  Receive Date: 20131011
  Receipt Date: 20131011
  Transmission Date: 20140711
  Serious: Yes (Life-Threatening, Hospitalization)
  Sender: FDA-Public Use
  Company Number: US-SHIONOGI, INC-2013000298

PATIENT
  Age: 18 Year
  Sex: Female

DRUGS (5)
  1. NAPROXEN [Suspect]
     Indication: DYSMENORRHOEA
     Dosage: UNK
     Route: 065
  2. HUMAN PAPILLOMA VACCINE [Suspect]
     Indication: IMMUNISATION
     Dosage: UNK
     Route: 065
  3. TETANUS VACCINE [Suspect]
     Indication: IMMUNISATION
     Dosage: UNK
     Route: 065
  4. OMEPRAZOLE [Suspect]
     Indication: GASTROOESOPHAGEAL REFLUX DISEASE
     Dosage: UNK, QD
     Route: 065
  5. FEXOFENADINE HCL AND PSEUDOEPHEDRINE HCL [Suspect]
     Indication: SEASONAL ALLERGY
     Dosage: UNK
     Route: 065

REACTIONS (1)
  - Angioedema [Recovering/Resolving]
